FAERS Safety Report 7682288-7 (Version None)
Quarter: 2011Q3

REPORT INFORMATION
  Report Type: 
  Country: None (occurrence: None)
  Receive Date: 20110815
  Receipt Date: 20110809
  Transmission Date: 20111222
  Serious: Yes (Other)
  Sender: FDA-Public Use
  Company Number: US-AMGEN-USASP2011040381

PATIENT
  Age: 16 Year
  Sex: Male

DRUGS (3)
  1. ANTINEOPLASTIC AGENTS [Concomitant]
     Indication: LYMPHOMA
     Dates: start: 20110601
  2. CYTARABINE [Concomitant]
     Indication: LYMPHOMA
     Dates: start: 20110801
  3. NEULASTA [Suspect]
     Indication: CHEMOTHERAPY
     Dates: start: 20110601

REACTIONS (3)
  - INCORRECT STORAGE OF DRUG [None]
  - THERAPEUTIC RESPONSE DECREASED [None]
  - WHITE BLOOD CELL COUNT DECREASED [None]
